FAERS Safety Report 15147094 (Version 3)
Quarter: 2019Q4

REPORT INFORMATION
  Report Type: Report from Study
  Country: US (occurrence: US)
  Receive Date: 20180716
  Receipt Date: 20191213
  Transmission Date: 20200122
  Serious: Yes (Death, Hospitalization, Other)
  Sender: FDA-Public Use
  Company Number: US-ACADIA PHARMACEUTICALS INC.-ACA-2018-008763

PATIENT
  Age: 80 Year
  Sex: Female

DRUGS (23)
  1. NUPLAZID [Suspect]
     Active Substance: PIMAVANSERIN TARTRATE
     Indication: DELUSION
     Dosage: 34 MG, QD
     Route: 065
     Dates: start: 20180509
  2. MELATONIN [Concomitant]
     Active Substance: MELATONIN
     Indication: PRODUCT USED FOR UNKNOWN INDICATION
     Dosage: 1/HS
     Dates: start: 20160222
  3. MELATONIN [Concomitant]
     Active Substance: MELATONIN
     Dosage: 1/HS
     Dates: start: 20180411
  4. MELATONIN [Concomitant]
     Active Substance: MELATONIN
     Dosage: 1/HS
     Dates: start: 20180509
  5. DONEPEZIL. [Concomitant]
     Active Substance: DONEPEZIL
     Dosage: 1/DAY
     Dates: start: 20180509
  6. NUPLAZID [Suspect]
     Active Substance: PIMAVANSERIN TARTRATE
     Indication: PRODUCT USED FOR UNKNOWN INDICATION
     Dosage: 34 MG
     Route: 065
     Dates: end: 20191203
  7. DONEPEZIL. [Concomitant]
     Active Substance: DONEPEZIL
     Indication: PRODUCT USED FOR UNKNOWN INDICATION
     Dosage: 1/DAY
     Dates: start: 20180411
  8. IBUPROFEN. [Concomitant]
     Active Substance: IBUPROFEN
     Dosage: PRN
     Dates: start: 20180509
  9. TYLENOL [Concomitant]
     Active Substance: ACETAMINOPHEN
     Indication: PRODUCT USED FOR UNKNOWN INDICATION
     Dosage: PRN
     Dates: start: 20180411
  10. TRAMADOL. [Concomitant]
     Active Substance: TRAMADOL
     Dosage: PRN
     Dates: start: 20160222
  11. TRAMADOL. [Concomitant]
     Active Substance: TRAMADOL
     Dosage: UNK, PRN
     Dates: start: 20180509
  12. LISINOPRIL. [Concomitant]
     Active Substance: LISINOPRIL
     Dosage: 40 MG, QD
     Dates: start: 20180509
  13. ATENOLOL. [Concomitant]
     Active Substance: ATENOLOL
     Dosage: UNK UNK, QD
     Dates: start: 20180411
  14. TRAMADOL. [Concomitant]
     Active Substance: TRAMADOL
     Dosage: PRN
     Dates: start: 20180411
  15. IBUPROFEN. [Concomitant]
     Active Substance: IBUPROFEN
     Indication: PRODUCT USED FOR UNKNOWN INDICATION
     Dosage: PRN
     Dates: start: 20180411
  16. ATENOLOL. [Concomitant]
     Active Substance: ATENOLOL
     Indication: PRODUCT USED FOR UNKNOWN INDICATION
     Dosage: UNK UNK, QD
     Dates: start: 20160104
  17. ATENOLOL. [Concomitant]
     Active Substance: ATENOLOL
     Dosage: UNK
     Dates: start: 20160222
  18. TRAMADOL. [Concomitant]
     Active Substance: TRAMADOL
     Indication: PRODUCT USED FOR UNKNOWN INDICATION
     Dosage: PRN
     Dates: start: 20160104
  19. TYLENOL [Concomitant]
     Active Substance: ACETAMINOPHEN
     Dosage: PRN
     Dates: start: 20180509
  20. NUPLAZID [Suspect]
     Active Substance: PIMAVANSERIN TARTRATE
     Indication: HALLUCINATION
     Dosage: 34 MG, QD
     Route: 065
     Dates: start: 20180411
  21. NUPLAZID [Suspect]
     Active Substance: PIMAVANSERIN TARTRATE
     Indication: PARKINSON^S DISEASE PSYCHOSIS
  22. ATENOLOL. [Concomitant]
     Active Substance: ATENOLOL
     Dosage: UNK UNK, QD
     Dates: start: 20180509
  23. LISINOPRIL. [Concomitant]
     Active Substance: LISINOPRIL
     Indication: PRODUCT USED FOR UNKNOWN INDICATION
     Dosage: 40 MG, QD
     Dates: start: 20180411

REACTIONS (3)
  - Cerebrovascular accident [Recovering/Resolving]
  - Death [Fatal]
  - Nausea [Unknown]

NARRATIVE: CASE EVENT DATE: 20180608
